FAERS Safety Report 21948690 (Version 2)
Quarter: 2023Q1

REPORT INFORMATION
  Report Type: Spontaneous
  Country: US (occurrence: US)
  Receive Date: 20230203
  Receipt Date: 20230207
  Transmission Date: 20230417
  Serious: No
  Sender: FDA-Public Use
  Company Number: US-BRISTOL-MYERS SQUIBB COMPANY-2023-016359

PATIENT
  Age: 69 Year
  Sex: Female
  Weight: 77.791 kg

DRUGS (1)
  1. REVLIMID [Suspect]
     Active Substance: LENALIDOMIDE
     Indication: Plasma cell myeloma
     Dosage: 2W, 1W OFF
     Route: 048

REACTIONS (4)
  - Diarrhoea [Unknown]
  - Off label use [Unknown]
  - Anaemia [Unknown]
  - Faeces discoloured [Unknown]
